FAERS Safety Report 7796274-X (Version None)
Quarter: 2011Q4

REPORT INFORMATION
  Report Type: 
  Country: None (occurrence: None)
  Receive Date: 20111004
  Receipt Date: 20110926
  Transmission Date: 20120403
  Serious: Yes (Hospitalization)
  Sender: FDA-Public Use
  Company Number: US-SANOFI-AVENTIS-2011SA063472

PATIENT
  Age: 54 Year
  Sex: Male
  Weight: 86 kg

DRUGS (2)
  1. PLAVIX [Suspect]
     Indication: STENT PLACEMENT
     Route: 048
     Dates: start: 20080901
  2. PLAVIX [Suspect]
     Route: 048
     Dates: start: 20080901

REACTIONS (2)
  - CORONARY ARTERY OCCLUSION [None]
  - BACK PAIN [None]
